FAERS Safety Report 26034713 (Version 1)
Quarter: 2025Q4

REPORT INFORMATION
  Report Type: Report from Study
  Country: US (occurrence: US)
  Receive Date: 20251112
  Receipt Date: 20251112
  Transmission Date: 20260117
  Serious: Yes (Hospitalization, Other)
  Sender: GILEAD
  Company Number: US-GILEAD-2025-0736080

PATIENT
  Sex: Female

DRUGS (1)
  1. AMBRISENTAN [Suspect]
     Active Substance: AMBRISENTAN
     Indication: Product used for unknown indication
     Dosage: 10MG ORALLY DAILY
     Route: 048
     Dates: start: 20141023

REACTIONS (2)
  - Small intestinal haemorrhage [Recovering/Resolving]
  - Intentional dose omission [Unknown]
